FAERS Safety Report 14458506 (Version 2)
Quarter: 2018Q1

REPORT INFORMATION
  Report Type: Spontaneous
  Country: US (occurrence: US)
  Receive Date: 20180130
  Receipt Date: 20180305
  Transmission Date: 20180509
  Serious: Yes (Other)
  Sender: FDA-Public Use
  Company Number: US-LEXICON PHARMACEUTICALS, INC-18-1606-00077

PATIENT
  Age: 66 Year
  Sex: Female
  Weight: 58.57 kg

DRUGS (12)
  1. WELLBUTRIN [Concomitant]
     Active Substance: BUPROPION HYDROCHLORIDE
     Indication: DEPRESSION
     Dosage: TAKING IT ^OFF AND ON^ FOR THE PAST ^FEW YEARS,^ EXACT DATE UNKNOWN
     Route: 048
  2. PRILOSEC [Concomitant]
     Active Substance: OMEPRAZOLE MAGNESIUM
     Route: 048
  3. OCTREOTIDE/SANDOSTATIN [Concomitant]
     Indication: CARCINOID SYNDROME
     Dosage: STARTED ^YEARS AGO^
  4. SINEMET [Concomitant]
     Active Substance: CARBIDOPA\LEVODOPA
     Dosage: 25/250 STARTED ABOUT 3 WEEKS AGO AND IS ONGOING (ALSO REPORTED AS STARTED 2 WEEKS AGO)
     Route: 048
  5. GENERIC LOMOTIL [Concomitant]
     Indication: DIARRHOEA
     Dosage: STARTED ABOUT 2 YEARS AGO
     Route: 048
  6. TELOTRISTAT ETHYL [Suspect]
     Active Substance: TELOTRISTAT ETHYL
     Indication: CARCINOID SYNDROME
     Route: 048
     Dates: start: 20171220, end: 20171230
  7. ATIVAN [Concomitant]
     Active Substance: LORAZEPAM
     Indication: ANXIETY
     Route: 048
  8. LOPRESSOR [Concomitant]
     Active Substance: METOPROLOL TARTRATE
     Indication: HYPERTENSION
     Route: 048
  9. SINEMET [Concomitant]
     Active Substance: CARBIDOPA\LEVODOPA
     Dosage: 25/100 STARTED ABOUT 3 YEARS AGO AND STOPPED ABOUT 3 WEEKS AGO, EXACT DATES UNKNOWN (ALSO REPORTED A
     Route: 048
  10. NORVASC [Concomitant]
     Active Substance: AMLODIPINE BESYLATE
     Indication: HYPERTENSION
     Route: 048
  11. TINCTURE OF OPIUM [Concomitant]
     Active Substance: OPIUM
     Indication: DIARRHOEA
  12. SUTENT [Concomitant]
     Active Substance: SUNITINIB MALATE
     Indication: METASTATIC NEOPLASM
     Dosage: STARTED ^A FEW YEARS AGO,^ EXACT DATE UNKNOWN
     Route: 048

REACTIONS (8)
  - Nausea [Unknown]
  - Muscular weakness [Not Recovered/Not Resolved]
  - Dyspnoea [Not Recovered/Not Resolved]
  - Anxiety [Not Recovered/Not Resolved]
  - Chest pain [Not Recovered/Not Resolved]
  - Palpitations [Not Recovered/Not Resolved]
  - Headache [Unknown]
  - Flushing [Unknown]

NARRATIVE: CASE EVENT DATE: 201712
